FAERS Safety Report 8196667-5 (Version None)
Quarter: 2012Q1

REPORT INFORMATION
  Report Type: 
  Country: None (occurrence: None)
  Receive Date: 20120309
  Receipt Date: 20120227
  Transmission Date: 20120608
  Serious: Yes (Hospitalization, Other)
  Sender: FDA-Public Use
  Company Number: IT-ACTELION-A-CH2011-58074

PATIENT
  Sex: Female
  Weight: 15.5 kg

DRUGS (4)
  1. MYOZYME [Concomitant]
     Dosage: UNK
     Dates: start: 20060501
  2. ZAVESCA [Suspect]
     Dosage: 150 MG, QD
     Route: 048
  3. ZAVESCA [Suspect]
     Indication: GLYCOGEN STORAGE DISEASE TYPE II
     Dosage: 100 MG, BID
     Route: 048
     Dates: start: 20110727, end: 20111130
  4. MERITENE [Concomitant]

REACTIONS (9)
  - CHEST X-RAY ABNORMAL [None]
  - WHITE BLOOD CELL COUNT INCREASED [None]
  - HEADACHE [None]
  - PYREXIA [None]
  - C-REACTIVE PROTEIN INCREASED [None]
  - PNEUMONIA [None]
  - ASPARTATE AMINOTRANSFERASE INCREASED [None]
  - RED BLOOD CELL SEDIMENTATION RATE INCREASED [None]
  - ALANINE AMINOTRANSFERASE INCREASED [None]
